FAERS Safety Report 8628788 (Version 2)
Quarter: 2013Q1

REPORT INFORMATION
  Report Type: Spontaneous
  Country: KR (occurrence: None)
  Receive Date: 20120601
  Receipt Date: 20121211
  Transmission Date: 20140127
  Serious: Yes (Other)
  Sender: FDA-Public Use
  Company Number: DSA_57622_2012

PATIENT
  Sex: 0

DRUGS (6)
  1. FLUOROURACIL (FLUOROURACIL) [Suspect]
     Indication: METASTATIC GASTRIC CANCER
     Route: 042
  2. DOCETAXEL [Suspect]
     Indication: METASTATIC GASTRIC CANCER
     Route: 042
  3. CISPLATIN [Suspect]
     Indication: METASTATIC GASTRIC CANCER
     Route: 042
  4. DEXAMETHASONE [Concomitant]
  5. RANITIDINE [Concomitant]
  6. PHENIRAMINE MALEATE [Concomitant]

REACTIONS (2)
  - Nausea [None]
  - Vomiting [None]
